FAERS Safety Report 7439492-2 (Version None)
Quarter: 2011Q2

REPORT INFORMATION
  Report Type: 
  Country: None (occurrence: None)
  Receive Date: 20110427
  Receipt Date: 20110418
  Transmission Date: 20111010
  Serious: Yes (Other)
  Sender: FDA-Public Use
  Company Number: GB-ASTRAZENECA-2011SE22038

PATIENT
  Age: 71 Year
  Sex: Male

DRUGS (9)
  1. TRAMADOL HCL [Concomitant]
  2. VITAMIN B COMPLEX CAP [Concomitant]
  3. MOVIPREP [Concomitant]
  4. PRAVASTATIN [Concomitant]
  5. DILTIAZEM HCL [Concomitant]
  6. OMEPRAZOLE [Suspect]
     Route: 048
  7. ACETYLSALICYLIC ACID SRT [Suspect]
  8. NICORANDIL [Concomitant]
  9. PROCTOSEDYL [Concomitant]

REACTIONS (3)
  - VOMITING [None]
  - HAEMATEMESIS [None]
  - MALAISE [None]
